FAERS Safety Report 4665582-3 (Version None)
Quarter: 2005Q2

REPORT INFORMATION
  Report Type: 
  Country: None (occurrence: None)
  Receive Date: 20050518
  Receipt Date: 20050518
  Transmission Date: 20051028
  Serious: Yes (Death)
  Sender: FDA-Public Use
  Company Number: None

PATIENT
  Age: 80 Year
  Sex: Female
  Weight: 68 kg

DRUGS (3)
  1. DOCETAXEL [Suspect]
     Indication: MALIGNANT MELANOMA
     Dosage: 85 MG/M2 IV , Q21 D
     Route: 042
     Dates: start: 20040916
  2. ELOXATIN [Suspect]
     Dosage: 85 MG/M2, IV Q21 D
     Route: 042
     Dates: start: 20040917
  3. GM-CSF 250 MG/M2/D SQ FROM 9/18/04 X 10 DAYS [Suspect]
     Dosage: 250 MG/M2/D SQ FROM 9/18/04 X 10 DAYS

REACTIONS (1)
  - INTESTINAL PERFORATION [None]
